FAERS Safety Report 5264434-8 (Version None)
Quarter: 2007Q1

REPORT INFORMATION
  Report Type: 
  Country: None (occurrence: None)
  Receive Date: 20070309
  Receipt Date: 20070228
  Transmission Date: 20070707
  Serious: Yes (Other)
  Sender: FDA-Public Use
  Company Number: 235526

PATIENT
  Age: 15 Year
  Sex: Male

DRUGS (4)
  1. NUTROPIN AQ [Suspect]
     Indication: GROWTH HORMONE DEFICIENCY
     Dosage: 0.4 MG, QD
     Dates: start: 20000908
  2. LEXAPRO [Concomitant]
  3. FLUPHENAZINE (FLUPHENAZINE ENANTHATE) [Concomitant]
  4. GUANFACINE (GUANFACINE HYDROCHLORIDE) [Concomitant]

REACTIONS (2)
  - CONDITION AGGRAVATED [None]
  - TOURETTE'S DISORDER [None]
